FAERS Safety Report 23499352 (Version 1)
Quarter: 2024Q1

REPORT INFORMATION
  Report Type: Spontaneous
  Country: US (occurrence: US)
  Receive Date: 20240208
  Receipt Date: 20240208
  Transmission Date: 20240410
  Serious: No
  Sender: FDA-Public Use
  Company Number: US-BEH-2024167982

PATIENT
  Age: 45 Year
  Sex: Female

DRUGS (3)
  1. HIZENTRA [Suspect]
     Active Substance: HUMAN IMMUNOGLOBULIN G
     Indication: Chronic inflammatory demyelinating polyradiculoneuropathy
     Dosage: UNK
     Route: 058
     Dates: start: 202211
  2. PROPRANOLOL [Concomitant]
     Active Substance: PROPRANOLOL HYDROCHLORIDE
  3. PREGABALIN [Concomitant]
     Active Substance: PREGABALIN

REACTIONS (2)
  - Upper respiratory tract infection [Not Recovered/Not Resolved]
  - Dysphonia [Not Recovered/Not Resolved]
